FAERS Safety Report 10275959 (Version 1)
Quarter: 2014Q3

REPORT INFORMATION
  Report Type: Spontaneous
  Country: US (occurrence: None)
  Receive Date: 20140701
  Receipt Date: 20140701
  Transmission Date: 20150326
  Serious: Yes (Hospitalization)
  Sender: FDA-Public Use
  Company Number: None

PATIENT
  Age: 66 Year
  Sex: Male
  Weight: 75 kg

DRUGS (2)
  1. NEOSTIGMINE [Suspect]
     Active Substance: NEOSTIGMINE
     Indication: SURGERY
     Route: 042
     Dates: start: 20140609, end: 20140609
  2. PROPOFOL. [Suspect]
     Active Substance: PROPOFOL
     Indication: SURGERY
     Route: 042
     Dates: start: 20140609, end: 20140609

REACTIONS (4)
  - Cardiac arrest [None]
  - Loss of consciousness [None]
  - Sinus bradycardia [None]
  - Unresponsive to stimuli [None]

NARRATIVE: CASE EVENT DATE: 20140609
